FAERS Safety Report 8610617-6 (Version None)
Quarter: 2012Q3

REPORT INFORMATION
  Report Type: 
  Country: None (occurrence: None)
  Receive Date: 20120822
  Receipt Date: 20120813
  Transmission Date: 20120928
  Serious: Yes (Life-Threatening, Hospitalization, Other)
  Sender: FDA-Public Use
  Company Number: JP-GENZYME-THYM-1003375

PATIENT
  Age: 7 Year
  Sex: Female

DRUGS (5)
  1. METHYLPREDNISOLONE [Suspect]
     Indication: APLASTIC ANAEMIA
     Dosage: 40 MG, QD
     Route: 065
  2. THYMOGLOBULIN [Suspect]
     Indication: APLASTIC ANAEMIA
     Dosage: 40 MG, QD
     Route: 065
  3. NEUPOGEN [Concomitant]
     Indication: APLASTIC ANAEMIA
     Dosage: 40 MG, QD
     Route: 065
  4. CYCLOSPORINE [Suspect]
     Indication: APLASTIC ANAEMIA
     Dosage: 60 MG, BID
     Route: 065
  5. HYPNOTICS AND SEDATIVES [Concomitant]
     Indication: PRODUCT USED FOR UNKNOWN INDICATION
     Dosage: UNK
     Route: 065

REACTIONS (6)
  - VISION BLURRED [None]
  - CEREBRAL VASOCONSTRICTION [None]
  - LOSS OF CONSCIOUSNESS [None]
  - HEADACHE [None]
  - BLOOD PRESSURE INCREASED [None]
  - CEREBRAL HAEMORRHAGE [None]
